FAERS Safety Report 21179482 (Version 1)
Quarter: 2022Q3

REPORT INFORMATION
  Report Type: Spontaneous
  Country: US (occurrence: None)
  Receive Date: 20220805
  Receipt Date: 20220805
  Transmission Date: 20221026
  Serious: Yes (Hospitalization)
  Sender: FDA-Public Use
  Company Number: None

PATIENT
  Age: 72 Year
  Sex: Female
  Weight: 99 kg

DRUGS (1)
  1. APIXABAN [Suspect]
     Active Substance: APIXABAN
     Indication: Cerebrovascular accident prophylaxis
     Dosage: FREQUENCY : TWICE A DAY;?
     Route: 048
     Dates: start: 20200519

REACTIONS (5)
  - Gastrointestinal haemorrhage [None]
  - Laboratory test abnormal [None]
  - Anaemia [None]
  - Faeces discoloured [None]
  - Acute kidney injury [None]

NARRATIVE: CASE EVENT DATE: 20220729
